FAERS Safety Report 13992202 (Version 1)
Quarter: 2017Q3

REPORT INFORMATION
  Report Type: Spontaneous
  Country: US (occurrence: US)
  Receive Date: 20170920
  Receipt Date: 20170920
  Transmission Date: 20171128
  Serious: No
  Sender: FDA-Public Use
  Company Number: US-JNJFOC-20170811565

PATIENT
  Sex: Male

DRUGS (2)
  1. RISPERDAL [Suspect]
     Active Substance: RISPERIDONE
     Indication: DISTURBANCE IN ATTENTION
     Route: 048
     Dates: start: 201703, end: 2017
  2. TENEX [Concomitant]
     Active Substance: GUANFACINE HYDROCHLORIDE
     Route: 065

REACTIONS (4)
  - Breast enlargement [Not Recovered/Not Resolved]
  - Product use in unapproved indication [Unknown]
  - Weight increased [Not Recovered/Not Resolved]
  - Off label use [Unknown]

NARRATIVE: CASE EVENT DATE: 2017
